FAERS Safety Report 9805486 (Version 4)
Quarter: 2014Q1

REPORT INFORMATION
  Report Type: Spontaneous
  Country: AT (occurrence: AT)
  Receive Date: 20140109
  Receipt Date: 20140325
  Transmission Date: 20141002
  Serious: Yes (Hospitalization, Other)
  Sender: FDA-Public Use
  Company Number: AT-SA-2014SA000105

PATIENT
  Age: 89 Year
  Sex: Female

DRUGS (12)
  1. LASIX [Suspect]
     Indication: HYPERTENSION
     Route: 065
     Dates: end: 20120710
  2. VISMODEGIB [Concomitant]
     Indication: BASAL CELL CARCINOMA
     Route: 048
     Dates: start: 20120611
  3. ATACAND [Concomitant]
     Indication: HYPERTENSION
  4. CAL-D-VITA [Concomitant]
     Dates: end: 20120710
  5. ALNA [Concomitant]
     Indication: BLADDER IRRITATION
     Dates: end: 20120710
  6. ARICEPT [Concomitant]
     Indication: DEMENTIA
     Dates: end: 20120710
  7. MYOCHOLINE ^GLENWOOD^ [Concomitant]
     Indication: DEMENTIA
     Dates: end: 20120710
  8. NORVASC [Concomitant]
     Indication: HYPERTENSION
     Dates: end: 20120710
  9. SEROQUEL [Concomitant]
     Indication: DEMENTIA
     Dates: end: 20120710
  10. PANTOPRAZOLE [Concomitant]
     Dates: start: 20120625, end: 20120710
  11. ROCALTROL [Concomitant]
     Indication: HYPOPARATHYROIDISM
     Dates: start: 20120625, end: 20120710
  12. SELOKEN [Concomitant]
     Indication: CARDIAC FAILURE
     Dates: start: 20120625, end: 20120710

REACTIONS (5)
  - Fatigue [Recovered/Resolved]
  - Dehydration [Recovered/Resolved]
  - Urinary tract infection [Recovered/Resolved]
  - General physical health deterioration [Recovered/Resolved with Sequelae]
  - Type 2 diabetes mellitus [Recovered/Resolved]
